FAERS Safety Report 15666153 (Version 12)
Quarter: 2020Q4

REPORT INFORMATION
  Report Type: Report from Study
  Country: CA (occurrence: CA)
  Receive Date: 20181128
  Receipt Date: 20201202
  Transmission Date: 20210113
  Serious: Yes (Other)
  Sender: FDA-Public Use
  Company Number: PHHY2014CA068913

PATIENT
  Age: 50 Year
  Sex: Female

DRUGS (12)
  1. SANDOSTATIN LAR DEPOT [Suspect]
     Active Substance: OCTREOTIDE ACETATE
     Dosage: 20 MG, QMO (EVERY 4 WEEKS)
     Route: 030
     Dates: start: 20161212
  2. AUBAGIO [Suspect]
     Active Substance: TERIFLUNOMIDE
     Indication: MULTIPLE SCLEROSIS
     Dosage: 14 MG, QD
     Route: 065
  3. SANDOSTATIN LAR DEPOT [Suspect]
     Active Substance: OCTREOTIDE ACETATE
     Indication: ACROMEGALY
     Dosage: 30 MG, QMO, (4 WEEKS)
     Route: 030
     Dates: start: 20140505
  4. SOMAVERT [Concomitant]
     Active Substance: PEGVISOMANT
     Dosage: 20 MG, 5 INJECTIONS A DAY
     Route: 065
     Dates: end: 20200605
  5. CABERGOLINE. [Concomitant]
     Active Substance: CABERGOLINE
     Dosage: 1 MG (TWICE A WEEK)
     Route: 065
     Dates: start: 20200608
  6. SOMAVERT [Concomitant]
     Active Substance: PEGVISOMANT
     Indication: PRODUCT USED FOR UNKNOWN INDICATION
     Dosage: UNK
     Route: 065
  7. SOMAVERT [Concomitant]
     Active Substance: PEGVISOMANT
     Dosage: 20 MG, QW4
     Route: 065
  8. CABERGOLINE. [Concomitant]
     Active Substance: CABERGOLINE
     Indication: PRODUCT USED FOR UNKNOWN INDICATION
     Dosage: 0.5 MG(TWICE A WEEK) (2 TABS)
     Route: 065
     Dates: start: 20200608
  9. SANDOSTATIN LAR DEPOT [Suspect]
     Active Substance: OCTREOTIDE ACETATE
     Dosage: 30 MG, QMO
     Route: 030
     Dates: start: 20140625
  10. SANDOSTATIN LAR DEPOT [Suspect]
     Active Substance: OCTREOTIDE ACETATE
     Dosage: 20 MG, QMO (ONCE A MONTH)
     Route: 030
     Dates: start: 20150410, end: 20161114
  11. TECFIDERA [Suspect]
     Active Substance: DIMETHYL FUMARATE
     Indication: MULTIPLE SCLEROSIS
     Dosage: UNK
     Route: 065
     Dates: start: 201502, end: 20150416
  12. SOMAVERT [Concomitant]
     Active Substance: PEGVISOMANT
     Dosage: 20 MG, (6 TIMES PER WEEK)
     Route: 058
     Dates: start: 20180412

REACTIONS (36)
  - Pituitary tumour [Unknown]
  - Spinal osteoarthritis [Unknown]
  - Insulin-like growth factor decreased [Unknown]
  - Ear infection [Unknown]
  - Joint injury [Unknown]
  - Nervousness [Unknown]
  - Blood prolactin increased [Unknown]
  - Feeling abnormal [Unknown]
  - Paraesthesia [Recovering/Resolving]
  - Low density lipoprotein increased [Unknown]
  - Alopecia [Not Recovered/Not Resolved]
  - Illness [Unknown]
  - Nausea [Unknown]
  - Neck injury [Unknown]
  - Tonsillitis [Unknown]
  - Fatigue [Unknown]
  - Fall [Unknown]
  - Sciatica [Not Recovered/Not Resolved]
  - Blood thyroid stimulating hormone decreased [Unknown]
  - Pyrexia [Unknown]
  - Abdominal distension [Recovering/Resolving]
  - Blood pressure increased [Unknown]
  - Skeletal injury [Unknown]
  - Infected dermal cyst [Recovering/Resolving]
  - Blood growth hormone increased [Unknown]
  - Pain [Not Recovered/Not Resolved]
  - Faeces pale [Unknown]
  - Multiple sclerosis relapse [Not Recovered/Not Resolved]
  - Anxiety [Unknown]
  - Depressed mood [Unknown]
  - Needle issue [Unknown]
  - Abdominal pain [Unknown]
  - Bursitis [Unknown]
  - Hypoaesthesia [Recovering/Resolving]
  - Arthralgia [Not Recovered/Not Resolved]
  - Diarrhoea [Unknown]

NARRATIVE: CASE EVENT DATE: 201505
